FAERS Safety Report 16513714 (Version 1)
Quarter: 2019Q3

REPORT INFORMATION
  Report Type: Spontaneous
  Country: ID (occurrence: ID)
  Receive Date: 20190702
  Receipt Date: 20190702
  Transmission Date: 20191004
  Serious: Yes (Other)
  Sender: FDA-Public Use
  Company Number: ID-SUN PHARMACEUTICAL INDUSTRIES LTD-2019R1-212416

PATIENT
  Age: 37 Year
  Sex: Female

DRUGS (4)
  1. PROPYLTHIOURACIL. [Suspect]
     Active Substance: PROPYLTHIOURACIL
     Indication: BASEDOW^S DISEASE
     Dosage: 900 MILLIGRAM, DAILY
     Route: 065
  2. METHIMAZOLE. [Suspect]
     Active Substance: METHIMAZOLE
     Dosage: 60 MILLIGRAM, DAILY (DOWNTITRATED)
     Route: 065
  3. LEVOTHYROXINE. [Suspect]
     Active Substance: LEVOTHYROXINE
     Indication: HORMONE REPLACEMENT THERAPY
     Dosage: 50 MICROGRAM, DAILY (LT4)
  4. METHIMAZOLE. [Suspect]
     Active Substance: METHIMAZOLE
     Indication: BASEDOW^S DISEASE
     Dosage: 120 MILLIGRAM, DAILY (DURING THE FIRST TRIMESTER)
     Route: 065

REACTIONS (3)
  - Exposure during pregnancy [Unknown]
  - Therapy partial responder [Unknown]
  - Premature delivery [Not Recovered/Not Resolved]
